FAERS Safety Report 5641712-1 (Version None)
Quarter: 2008Q1

REPORT INFORMATION
  Report Type: 
  Country: None (occurrence: None)
  Receive Date: 20080227
  Receipt Date: 20080218
  Transmission Date: 20080703
  Serious: Yes (Life-Threatening)
  Sender: FDA-Public Use
  Company Number: IE-BAUSCH-2008BL000780

PATIENT
  Age: 69 Year
  Sex: Male

DRUGS (2)
  1. GENTAMICIN [Suspect]
     Indication: ANTI-INFECTIVE THERAPY
     Route: 042
  2. MIDAZOLAM HCL [Concomitant]
     Route: 042

REACTIONS (1)
  - ANAPHYLACTIC REACTION [None]
